FAERS Safety Report 7687099-4 (Version None)
Quarter: 2011Q3

REPORT INFORMATION
  Report Type: 
  Country: None (occurrence: None)
  Receive Date: 20110816
  Receipt Date: 20110812
  Transmission Date: 20111222
  Serious: Yes (Hospitalization)
  Sender: FDA-Public Use
  Company Number: PHHO2010US14984

PATIENT
  Sex: Female

DRUGS (10)
  1. SANDOSTATIN LAR [Concomitant]
  2. ASPIRIN [Concomitant]
  3. CREON [Concomitant]
  4. METFORMIN HCL [Concomitant]
  5. PLACEBO [Suspect]
     Indication: PANCREATIC NEUROENDOCRINE TUMOUR
     Dosage: UNK
     Dates: start: 20090428
  6. RAD 666 [Suspect]
     Indication: PANCREATIC NEUROENDOCRINE TUMOUR
     Dosage: 5 MG, QD
     Dates: start: 20091211, end: 20100930
  7. RAD 666 [Suspect]
     Dosage: 5 MG, QD
     Dates: start: 20101004, end: 20101018
  8. ATENOLOL [Concomitant]
  9. FEXOFENADINE [Concomitant]
  10. GLIPIZIDE [Concomitant]

REACTIONS (5)
  - NAUSEA [None]
  - HYPONATRAEMIA [None]
  - DIZZINESS [None]
  - COUGH [None]
  - SINUS DISORDER [None]
